FAERS Safety Report 6546505-9 (Version None)
Quarter: 2010Q1

REPORT INFORMATION
  Report Type: 
  Country: None (occurrence: None)
  Receive Date: 20100115
  Receipt Date: 20091231
  Transmission Date: 20100710
  Serious: No
  Sender: FDA-Public Use
  Company Number: 2009-00912

PATIENT
  Sex: Female

DRUGS (1)
  1. COLD REMEDY NASAL GEL [Suspect]
     Dosage: ^AS DIRECTED^

REACTIONS (2)
  - AGEUSIA [None]
  - ANOSMIA [None]
